FAERS Safety Report 9931293 (Version 1)
Quarter: 2014Q1

REPORT INFORMATION
  Report Type: Report from Study
  Country: KR (occurrence: KR)
  Receive Date: 20140228
  Receipt Date: 20140228
  Transmission Date: 20141002
  Serious: Yes (Other)
  Sender: FDA-Public Use
  Company Number: KR-ROCHE-1351112

PATIENT
  Sex: 0

DRUGS (2)
  1. CAPECITABINE [Suspect]
     Indication: HEPATOBILIARY CANCER
     Dosage: ON DAYS 1-14, CYCLES WERE REPEATED EVERY 3 WEEKS
     Route: 048
  2. CISPLATIN [Suspect]
     Indication: HEPATOBILIARY CANCER
     Dosage: ON DAYS 1 AND 8, FOLLOWED BY A 1-WEEK REST PERIOD. CYCLES WERE REPEATED EVERY 3 WEEKS
     Route: 042

REACTIONS (11)
  - Pancytopenia [Unknown]
  - Vomiting [Unknown]
  - Nausea [Unknown]
  - Decreased appetite [Unknown]
  - Cholangitis [Unknown]
  - Nephropathy [Unknown]
  - Neuropathy peripheral [Unknown]
  - Hepatic function abnormal [Unknown]
  - Palmar-plantar erythrodysaesthesia syndrome [Unknown]
  - Infection [Unknown]
  - Performance status decreased [Unknown]
